FAERS Safety Report 4436742-1 (Version None)
Quarter: 2004Q3

REPORT INFORMATION
  Report Type: 
  Country: None (occurrence: None)
  Receive Date: 20040728
  Receipt Date: 20030909
  Transmission Date: 20050211
  Serious: Yes (Other)
  Sender: FDA-Public Use
  Company Number: 202389

PATIENT
  Sex: Male

DRUGS (2)
  1. RITUXAN [Suspect]
     Indication: LYMPHOMA
     Dosage: 375 MG/M2, INTRAVENOUS
     Route: 042
  2. FLUDARABINE (FLUDARABINE PHOSPHATE) [Concomitant]

REACTIONS (2)
  - NEUTROPENIA [None]
  - THROMBOCYTOPENIA [None]
